FAERS Safety Report 5950683-X (Version None)
Quarter: 2008Q4

REPORT INFORMATION
  Report Type: 
  Country: None (occurrence: None)
  Receive Date: 20081112
  Receipt Date: 20081103
  Transmission Date: 20090506
  Serious: Yes (Death)
  Sender: FDA-Public Use
  Company Number: CN-GENENTECH-271035

PATIENT
  Age: 50 Year
  Sex: Male

DRUGS (2)
  1. MABTHERA [Suspect]
     Indication: LYMPHOMA
     Dosage: 600 MG, SINGLE
     Route: 042
     Dates: start: 20081031
  2. DEXAMETHASONE TAB [Concomitant]
     Indication: DYSPNOEA
     Dosage: UNK
     Dates: start: 20081031

REACTIONS (4)
  - HYPERKALAEMIA [None]
  - HYPERURICAEMIA [None]
  - HYPOCALCAEMIA [None]
  - RESPIRATORY FAILURE [None]
